FAERS Safety Report 4488131-1 (Version None)
Quarter: 2004Q4

REPORT INFORMATION
  Report Type: 
  Country: None (occurrence: None)
  Receive Date: 20041025
  Receipt Date: 20041018
  Transmission Date: 20050328
  Serious: Yes (Life-Threatening)
  Sender: FDA-Public Use
  Company Number: 2004CG02097

PATIENT
  Age: 76 Year
  Sex: Female

DRUGS (9)
  1. TENORMIN [Suspect]
     Indication: MYOCARDIAL ISCHAEMIA
  2. LORAZEPAM [Suspect]
     Indication: NEUROSIS
  3. HALDOL [Suspect]
     Indication: NEUROSIS
  4. NICARDIPINE HCL [Suspect]
     Indication: MYOCARDIAL ISCHAEMIA
  5. ANAFRANIL [Suspect]
     Indication: NEUROSIS
  6. CLONAZEPAM [Suspect]
     Indication: NEUROSIS
  7. TRIVASTAL [Suspect]
  8. PANTOPRAZOLE SODIUM [Suspect]
  9. KARDEGIC /FRA/ [Suspect]

REACTIONS (3)
  - BLOOD CHOLESTEROL INCREASED [None]
  - HEPATIC STEATOSIS [None]
  - HEPATITIS CHOLESTATIC [None]
